FAERS Safety Report 7615744-8 (Version None)
Quarter: 2011Q3

REPORT INFORMATION
  Report Type: 
  Country: None (occurrence: None)
  Receive Date: 20110715
  Receipt Date: 20110715
  Transmission Date: 20111222
  Serious: Yes (Death)
  Sender: FDA-Public Use
  Company Number: None

PATIENT
  Age: 63 Year
  Sex: Male
  Weight: 68.0396 kg

DRUGS (1)
  1. SIROLIMUS [Suspect]

REACTIONS (4)
  - PLATELET COUNT DECREASED [None]
  - PROCEDURAL HYPOTENSION [None]
  - NEUTROPHIL COUNT DECREASED [None]
  - HAEMATOCRIT DECREASED [None]
